FAERS Safety Report 4527997-3 (Version None)
Quarter: 2004Q4

REPORT INFORMATION
  Report Type: 
  Country: None (occurrence: None)
  Receive Date: 20041123
  Receipt Date: 20040312
  Transmission Date: 20050328
  Serious: Yes (Hospitalization, Other)
  Sender: FDA-Public Use
  Company Number: 2004012569

PATIENT
  Age: 52 Year
  Sex: Female

DRUGS (6)
  1. LIPITOR [Suspect]
     Indication: LIPIDS INCREASED
     Dosage: 40 MG (DAILY)
     Dates: start: 20010701
  2. DILTIAZEM HYDROCHLORIDE [Concomitant]
  3. CAPOZIDE (HYDROCHLOROTHIAZIDE, CAPTOPRIL) [Concomitant]
  4. POTASSIUM CHLORIDE [Concomitant]
  5. METFROMIN HYDROCHLORIDE (METFROMIN HYDROCHLORIDE) [Concomitant]
  6. ALLOPURINOL [Concomitant]

REACTIONS (1)
  - RHABDOMYOLYSIS [None]
